FAERS Safety Report 11063491 (Version 1)
Quarter: 2015Q2

REPORT INFORMATION
  Report Type: Spontaneous
  Country: US (occurrence: US)
  Receive Date: 20150424
  Receipt Date: 20150424
  Transmission Date: 20150821
  Serious: No
  Sender: FDA-Public Use
  Company Number: US-ALKERMES INC.-ALK-2014-003649

PATIENT

DRUGS (1)
  1. VIVITROL [Suspect]
     Active Substance: NALTREXONE
     Indication: DRUG DEPENDENCE
     Dosage: 380 MG, QMO
     Route: 030
     Dates: start: 20140926

REACTIONS (8)
  - Mood swings [Recovered/Resolved]
  - Hot flush [Recovering/Resolving]
  - Hyperhidrosis [Recovering/Resolving]
  - Headache [Recovering/Resolving]
  - Lethargy [Recovering/Resolving]
  - Anger [Recovering/Resolving]
  - Drug dose omission [Recovered/Resolved]
  - Drug abuse [Unknown]

NARRATIVE: CASE EVENT DATE: 20140926
